FAERS Safety Report 6069979-9 (Version None)
Quarter: 2009Q1

REPORT INFORMATION
  Report Type: 
  Country: None (occurrence: None)
  Receive Date: 20090209
  Receipt Date: 20090130
  Transmission Date: 20090719
  Serious: Yes (Hospitalization)
  Sender: FDA-Public Use
  Company Number: GB-AVENTIS-200911147GDDC

PATIENT
  Age: 60 Year
  Sex: Male
  Weight: 100 kg

DRUGS (3)
  1. DOCETAXEL [Suspect]
     Dosage: DOSE: UNK
     Route: 042
     Dates: start: 20090121, end: 20090121
  2. ZOLEDRONIC ACID [Suspect]
     Dosage: DOSE: UNK
     Dates: start: 20090121, end: 20090121
  3. PREDNISOLONE [Suspect]
     Dosage: DOSE: UNK
     Dates: start: 20090121, end: 20090128

REACTIONS (4)
  - DIARRHOEA [None]
  - FEBRILE NEUTROPENIA [None]
  - HYPOCALCAEMIA [None]
  - VOMITING [None]
